FAERS Safety Report 23259881 (Version 1)
Quarter: 2023Q4

REPORT INFORMATION
  Report Type: Spontaneous
  Country: FR (occurrence: FR)
  Receive Date: 20231204
  Receipt Date: 20231204
  Transmission Date: 20240110
  Serious: Yes (Death, Other)
  Sender: FDA-Public Use
  Company Number: None

PATIENT
  Age: 78 Year
  Sex: Male
  Weight: 72 kg

DRUGS (7)
  1. RITUXIMAB [Suspect]
     Active Substance: RITUXIMAB
     Indication: Waldenstrom^s macroglobulinaemia
     Dosage: 700 MG, EVERY 3 WEEKS
     Route: 042
     Dates: start: 20230120, end: 20230607
  2. LEUCOVORIN CALCIUM [Concomitant]
     Active Substance: LEUCOVORIN CALCIUM
     Dosage: 1 DF, WEEKLY
     Route: 048
     Dates: end: 20231029
  3. MOVICOL [Concomitant]
     Active Substance: POLYETHYLENE GLYCOL 3350\POTASSIUM CHLORIDE\SODIUM BICARBONATE\SODIUM CHLORIDE
     Dosage: 3 DF, 1X/DAY (IF NEEDED)
     Route: 048
     Dates: end: 20231030
  4. BENDAMUSTINE [Concomitant]
     Active Substance: BENDAMUSTINE
     Dosage: 165 MG, EVERY 3 WEEKS
     Route: 042
     Dates: start: 20230120, end: 20230511
  5. VALACYCLOVIR HYDROCHLORIDE [Concomitant]
     Active Substance: VALACYCLOVIR HYDROCHLORIDE
     Dosage: 2 DF, 1X/DAY
     Route: 048
     Dates: end: 20231030
  6. CHOLECALCIFEROL [Concomitant]
     Active Substance: CHOLECALCIFEROL
     Dosage: 1 DF, EVERY 3 MONTHS
     Route: 048
     Dates: end: 20231030
  7. BACTRIM [Concomitant]
     Active Substance: SULFAMETHOXAZOLE\TRIMETHOPRIM
     Dosage: 3 DF, WEEKLY
     Route: 048
     Dates: end: 20231030

REACTIONS (1)
  - COVID-19 pneumonia [Fatal]

NARRATIVE: CASE EVENT DATE: 20231004
